FAERS Safety Report 6789140-X (Version None)
Quarter: 2010Q2

REPORT INFORMATION
  Report Type: 
  Country: None (occurrence: None)
  Receive Date: 20100623
  Receipt Date: 20080630
  Transmission Date: 20101027
  Serious: No
  Sender: FDA-Public Use
  Company Number: US-PFIZER INC-2008054640

PATIENT

DRUGS (2)
  1. GEODON [Suspect]
  2. DEPAKOTE [Suspect]

REACTIONS (1)
  - EXTRAPYRAMIDAL DISORDER [None]
